FAERS Safety Report 8549268-0 (Version None)
Quarter: 2012Q3

REPORT INFORMATION
  Report Type: 
  Country: None (occurrence: None)
  Receive Date: 20120720
  Receipt Date: 20120720
  Transmission Date: 20120928
  Serious: Yes (Disabling)
  Sender: FDA-Public Use
  Company Number: None

PATIENT
  Age: 71 Year
  Sex: Female
  Weight: 74.8435 kg

DRUGS (1)
  1. IMMUNE GLOBULIN NOS [Suspect]

REACTIONS (1)
  - OPTIC ISCHAEMIC NEUROPATHY [None]
